FAERS Safety Report 4620932-9 (Version None)
Quarter: 2005Q1

REPORT INFORMATION
  Report Type: 
  Country: None (occurrence: None)
  Receive Date: 20050328
  Receipt Date: 20050318
  Transmission Date: 20050727
  Serious: Yes (Life-Threatening, Hospitalization)
  Sender: FDA-Public Use
  Company Number: JP-ABBOTT-05P-087-0294770-00

PATIENT
  Age: 70 Year
  Sex: Female
  Weight: 46 kg

DRUGS (11)
  1. CLARITH [Suspect]
     Indication: ATYPICAL MYCOBACTERIAL INFECTION
     Route: 048
     Dates: start: 20040901, end: 20040921
  2. WARFARIN POTASSIUM [Interacting]
     Indication: THROMBOSIS PROPHYLAXIS
     Route: 048
     Dates: start: 20040629, end: 20040921
  3. WARFARIN POTASSIUM [Interacting]
     Route: 048
     Dates: start: 20040927
  4. DIGOXIN [Interacting]
     Indication: HEART RATE IRREGULAR
     Route: 048
     Dates: start: 20040817, end: 20040921
  5. TORSEMIDE [Concomitant]
     Indication: DRUG USE FOR UNKNOWN INDICATION
     Route: 048
     Dates: start: 20040720
  6. CALCITRIOL [Concomitant]
     Indication: OSTEOPOROSIS
     Route: 048
     Dates: start: 20040629
  7. MAGNESIUM OXIDE [Concomitant]
     Indication: DRUG USE FOR UNKNOWN INDICATION
     Route: 048
  8. TEPRENONE [Concomitant]
     Indication: DRUG USE FOR UNKNOWN INDICATION
     Route: 048
     Dates: start: 20040710
  9. DIAZEPAM [Concomitant]
     Indication: INSOMNIA
     Route: 048
  10. CARVEDILOL [Concomitant]
     Indication: DRUG USE FOR UNKNOWN INDICATION
     Route: 048
     Dates: start: 20040702, end: 20040719
  11. CARVEDILOL [Concomitant]
     Route: 048
     Dates: start: 20040720, end: 20040921

REACTIONS (8)
  - ANAEMIA [None]
  - BRADYCARDIA [None]
  - CARDIOACTIVE DRUG LEVEL INCREASED [None]
  - DRUG INTERACTION [None]
  - HAEMORRHAGIC DIATHESIS [None]
  - HAEMORRHAGIC DISORDER [None]
  - VENTRICULAR EXTRASYSTOLES [None]
  - XANTHOPSIA [None]
